FAERS Safety Report 9001437 (Version 2)
Quarter: 2013Q1

REPORT INFORMATION
  Report Type: Spontaneous
  Country: US (occurrence: US)
  Receive Date: 20130107
  Receipt Date: 20130206
  Transmission Date: 20140127
  Serious: No
  Sender: FDA-Public Use
  Company Number: US-ASTRAZENECA-2012SE96064

PATIENT
  Age: 62 Year
  Sex: Female
  Weight: 81.6 kg

DRUGS (11)
  1. SYMBICORT [Suspect]
     Indication: CHRONIC OBSTRUCTIVE PULMONARY DISEASE
     Dosage: 160 MCG,2PUFF; TWO TIMES A DAY
     Route: 055
  2. LISINOPRIL/HCTZ [Suspect]
     Indication: HYPERTENSION
     Dosage: 10+12.5 MG ;DAILY
     Route: 048
  3. ANTIBIOTIC [Suspect]
     Route: 065
  4. ASPIRIN [Concomitant]
  5. ATORVASTATIN [Concomitant]
     Indication: BLOOD CHOLESTEROL INCREASED
  6. ALLEGRA [Concomitant]
     Indication: MULTIPLE ALLERGIES
  7. LEVOTHYROXINE [Concomitant]
     Indication: HYPOTHYROIDISM
  8. CITRUCEL [Concomitant]
  9. MULTI VITAMIN CENTRUM [Concomitant]
  10. PROAIR [Concomitant]
     Indication: INHALATION THERAPY
  11. SPIRIVA [Concomitant]
     Indication: CHRONIC OBSTRUCTIVE PULMONARY DISEASE

REACTIONS (4)
  - Bronchitis [Recovering/Resolving]
  - Malaise [Unknown]
  - Abdominal discomfort [Unknown]
  - Off label use [Unknown]
